FAERS Safety Report 22116480 (Version 1)
Quarter: 2023Q1

REPORT INFORMATION
  Report Type: Spontaneous
  Country: US (occurrence: US)
  Receive Date: 20230320
  Receipt Date: 20230320
  Transmission Date: 20230417
  Serious: No
  Sender: FDA-Public Use
  Company Number: US-TEVA-2023-US-2862774

PATIENT
  Age: 70 Year
  Sex: Female

DRUGS (2)
  1. NORTRIPTYLINE HYDROCHLORIDE [Suspect]
     Active Substance: NORTRIPTYLINE HYDROCHLORIDE
     Indication: Product used for unknown indication
     Route: 065
  2. NORTRIPTYLINE HYDROCHLORIDE [Suspect]
     Active Substance: NORTRIPTYLINE HYDROCHLORIDE
     Route: 065

REACTIONS (3)
  - Hypersensitivity [Unknown]
  - Reaction to preservatives [Unknown]
  - Allergic reaction to excipient [Unknown]

NARRATIVE: CASE EVENT DATE: 20230101
